FAERS Safety Report 4910401-0 (Version None)
Quarter: 2006Q1

REPORT INFORMATION
  Report Type: 
  Country: None (occurrence: None)
  Receive Date: 20060213
  Receipt Date: 20050421
  Transmission Date: 20060701
  Serious: Yes (Hospitalization, Disabling)
  Sender: FDA-Public Use
  Company Number: US-MERCK-0504USA04240

PATIENT
  Age: 54 Year
  Sex: Male

DRUGS (7)
  1. VIOXX [Suspect]
     Indication: ARTHRALGIA
     Route: 048
     Dates: start: 19990101
  2. PREVACID [Concomitant]
     Route: 065
  3. NEURONTIN [Concomitant]
     Route: 065
  4. METHADONE HYDROCHLORIDE [Concomitant]
     Route: 065
  5. PERCOCET [Concomitant]
     Route: 065
  6. VICODIN [Concomitant]
     Route: 065
  7. OXYCONTIN [Concomitant]
     Route: 065

REACTIONS (4)
  - ACUTE MYOCARDIAL INFARCTION [None]
  - CEREBROVASCULAR ACCIDENT [None]
  - HYPOTENSION [None]
  - INJURY [None]
